FAERS Safety Report 14738576 (Version 2)
Quarter: 2018Q2

REPORT INFORMATION
  Report Type: Report from Study
  Country: BE (occurrence: BE)
  Receive Date: 20180409
  Receipt Date: 20180423
  Transmission Date: 20180711
  Serious: Yes (Hospitalization)
  Sender: FDA-Public Use
  Company Number: BE-EISAI MEDICAL RESEARCH-EC-2018-037857

PATIENT
  Age: 75 Year
  Sex: Female
  Weight: 80 kg

DRUGS (15)
  1. MOUTH RINSE ONCOLOGY [Concomitant]
  2. OMEPRAZOLE. [Concomitant]
     Active Substance: OMEPRAZOLE
  3. ULTRA K [Concomitant]
  4. EVEROLIMUS. [Suspect]
     Active Substance: EVEROLIMUS
     Indication: CLEAR CELL RENAL CELL CARCINOMA
     Route: 048
     Dates: start: 20180316, end: 20180403
  5. ZOLPIDEM [Concomitant]
     Active Substance: ZOLPIDEM\ZOLPIDEM TARTRATE
  6. SIPRALEXA [Concomitant]
     Active Substance: ESCITALOPRAM OXALATE
  7. ANTIMETIL [Concomitant]
  8. TRAMADOL RETARD [Concomitant]
     Active Substance: TRAMADOL
  9. BISOPROLOL [Concomitant]
     Active Substance: BISOPROLOL
  10. LENVATINIB [Suspect]
     Active Substance: LENVATINIB
     Indication: CLEAR CELL RENAL CELL CARCINOMA
     Route: 048
     Dates: start: 20180316, end: 20180403
  11. DAFALGAN [Concomitant]
     Active Substance: ACETAMINOPHEN
  12. AMLOR [Concomitant]
     Active Substance: AMLODIPINE BESYLATE
  13. FOLIC ACID. [Concomitant]
     Active Substance: FOLIC ACID
  14. MOTILIUM [Concomitant]
     Active Substance: DOMPERIDONE
  15. TRANSTEC [Concomitant]
     Active Substance: BUPRENORPHINE

REACTIONS (2)
  - Diarrhoea [Recovered/Resolved]
  - Vomiting [Recovered/Resolved]

NARRATIVE: CASE EVENT DATE: 20180331
